FAERS Safety Report 18700942 (Version 1)
Quarter: 2021Q1

REPORT INFORMATION
  Report Type: Spontaneous
  Country: US (occurrence: US)
  Receive Date: 20210104
  Receipt Date: 20210104
  Transmission Date: 20210419
  Serious: No
  Sender: FDA-Public Use
  Company Number: None

PATIENT
  Age: 63 Year
  Sex: Female
  Weight: 68 kg

DRUGS (2)
  1. REGENERON [Concomitant]
     Active Substance: UNSPECIFIED INGREDIENT
     Dates: start: 20201230, end: 20201230
  2. CASIRIVIMAB/IMDEVIMAB [Suspect]
     Active Substance: CASIRIVIMAB\IMDEVIMAB
     Indication: COVID-19
     Dates: start: 20201230, end: 20201230

REACTIONS (4)
  - Flank pain [None]
  - Blood pressure systolic increased [None]
  - Dizziness [None]
  - Ocular hyperaemia [None]

NARRATIVE: CASE EVENT DATE: 20201230
